FAERS Safety Report 5476798-0 (Version None)
Quarter: 2007Q4

REPORT INFORMATION
  Report Type: 
  Country: None (occurrence: None)
  Receive Date: 20071003
  Receipt Date: 20071003
  Transmission Date: 20080405
  Serious: Yes (Hospitalization)
  Sender: FDA-Public Use
  Company Number: None

PATIENT
  Sex: Female
  Weight: 42.6381 kg

DRUGS (3)
  1. RIFAMPICIN [Suspect]
     Indication: TUBERCULOSIS
     Dosage: 600 MG DAILY ORAL
     Route: 048
     Dates: start: 20070811, end: 20070828
  2. ISONIAZID [Suspect]
     Indication: TUBERCULOSIS
     Dosage: 150 MG 2 X DAILY ORAL
     Route: 048
     Dates: start: 20070829, end: 20070912
  3. MYCOBUTIN [Suspect]
     Indication: TUBERCULOSIS
     Dosage: 300 MG DAILY ORAL
     Route: 048
     Dates: start: 20070811, end: 20070912

REACTIONS (7)
  - ANOREXIA [None]
  - ASPARTATE AMINOTRANSFERASE INCREASED [None]
  - ASTHENIA [None]
  - DIZZINESS [None]
  - HEADACHE [None]
  - HYPOTENSION [None]
  - NAUSEA [None]
